FAERS Safety Report 8525820-3 (Version None)
Quarter: 2012Q3

REPORT INFORMATION
  Report Type: 
  Country: None (occurrence: None)
  Receive Date: 20120720
  Receipt Date: 20120710
  Transmission Date: 20120928
  Serious: Yes (Hospitalization, Other)
  Sender: FDA-Public Use
  Company Number: JP-VERTEX PHARMACEUTICALS INC.-AE-2012-009243

PATIENT
  Age: 63 Year
  Sex: Male

DRUGS (17)
  1. ETODOLAC [Concomitant]
     Route: 048
     Dates: end: 20120606
  2. LOXONIN [Concomitant]
     Route: 048
  3. PEG-INTRON [Concomitant]
     Indication: HEPATITIS C
     Route: 058
     Dates: start: 20120514, end: 20120521
  4. MUCOSTA [Concomitant]
     Route: 048
  5. PEG-INTRON [Concomitant]
     Route: 058
     Dates: start: 20120528
  6. LAXOBERON [Concomitant]
     Route: 050
  7. ADALAT CC [Concomitant]
     Route: 048
     Dates: end: 20120612
  8. ESTAZOLAM [Concomitant]
     Route: 048
     Dates: end: 20120601
  9. ANTEBATE OINTMENT [Concomitant]
     Route: 061
     Dates: end: 20120604
  10. ALLOPURINOL [Concomitant]
     Route: 048
     Dates: start: 20120518, end: 20120529
  11. NEUROTROPIN [Concomitant]
     Route: 048
     Dates: end: 20120611
  12. LIDOMEX [Concomitant]
     Route: 061
     Dates: end: 20120604
  13. MAGLAX [Concomitant]
     Route: 048
     Dates: start: 20120514
  14. TELAVIC (TELAPREVIR) [Suspect]
     Indication: HEPATITIS C
     Route: 048
     Dates: start: 20120514, end: 20120520
  15. RIBAVIRIN [Concomitant]
     Indication: HEPATITIS C
     Route: 048
     Dates: start: 20120514
  16. MUCOSTA [Concomitant]
     Route: 048
  17. MAGLAX [Concomitant]
     Route: 048
     Dates: start: 20120606, end: 20120606

REACTIONS (3)
  - ERYSIPELAS [None]
  - RASH [None]
  - NEUTROPHIL COUNT DECREASED [None]
